FAERS Safety Report 11895644 (Version 1)
Quarter: 2016Q1

REPORT INFORMATION
  Report Type: Spontaneous
  Country: AU (occurrence: AU)
  Receive Date: 20160107
  Receipt Date: 20160107
  Transmission Date: 20160526
  Serious: Yes (Death, Other)
  Sender: FDA-Public Use
  Company Number: PHHY2015AU172451

PATIENT
  Age: 6 Month
  Sex: Male

DRUGS (9)
  1. PROCARBAZINE [Suspect]
     Active Substance: PROCARBAZINE
     Indication: METASTASES TO SPINE
     Route: 065
  2. CARBOPLATIN. [Suspect]
     Active Substance: CARBOPLATIN
     Indication: METASTASES TO SPINE
     Route: 065
  3. TEMOZOLOMIDE. [Suspect]
     Active Substance: TEMOZOLOMIDE
     Dosage: UNK
     Route: 065
  4. VINCRISTINE [Suspect]
     Active Substance: VINCRISTINE
     Route: 065
  5. IRINOTECAN [Suspect]
     Active Substance: IRINOTECAN
     Indication: GLIOMA
     Dosage: 125 UNK, UNK
     Route: 042
  6. CARBOPLATIN. [Suspect]
     Active Substance: CARBOPLATIN
     Dosage: UNK
  7. BEVACIZUMAB [Suspect]
     Active Substance: BEVACIZUMAB
     Indication: GLIOMA
     Dosage: 10 MG/KG, UNK
     Route: 042
  8. VINCRISTINE [Suspect]
     Active Substance: VINCRISTINE
     Indication: METASTASES TO SPINE
     Dosage: UNK
  9. TEMOZOLOMIDE. [Suspect]
     Active Substance: TEMOZOLOMIDE
     Indication: METASTASES TO SPINE
     Dosage: UNK
     Route: 065

REACTIONS (9)
  - Lethargy [Unknown]
  - Disease recurrence [Unknown]
  - Glioma [Unknown]
  - Drug effect incomplete [Unknown]
  - Disease progression [Fatal]
  - Neoplasm [Unknown]
  - Endocrine disorder [Unknown]
  - Failure to thrive [Unknown]
  - Headache [Unknown]
